FAERS Safety Report 7654127-1 (Version None)
Quarter: 2011Q3

REPORT INFORMATION
  Report Type: 
  Country: None (occurrence: None)
  Receive Date: 20110803
  Receipt Date: 20110727
  Transmission Date: 20111222
  Serious: Yes (Death)
  Sender: FDA-Public Use
  Company Number: PHHY2011NL65894

PATIENT
  Sex: Female
  Weight: 100 kg

DRUGS (3)
  1. SYMBICORT [Concomitant]
     Indication: ASTHMA
     Dosage: 2 DF, QD
     Dates: start: 20080221
  2. ALISKIREN [Suspect]
     Dosage: 300 MG, UNK
     Dates: start: 20090901
  3. IRBESARTAN AND HYDROCHLOROTHIAZIDE [Concomitant]
     Indication: HYPERTENSION
     Dosage: UNK UKN, UNK
     Dates: start: 20080721

REACTIONS (1)
  - CARDIAC FAILURE ACUTE [None]
